FAERS Safety Report 5167388-8 (Version None)
Quarter: 2006Q4

REPORT INFORMATION
  Report Type: 
  Country: None (occurrence: None)
  Receive Date: 20061130
  Receipt Date: 20061117
  Transmission Date: 20070319
  Serious: Yes (Death)
  Sender: FDA-Public Use
  Company Number: 2006142157

PATIENT
  Age: 16 Year
  Sex: Female

DRUGS (3)
  1. CYTOTEC [Suspect]
     Indication: ABORTION
     Dosage: 0.4 MG (0.4 MG, ONCE), ORAL
     Route: 048
     Dates: start: 20030528, end: 20030528
  2. DICLOFENAC SODIUM [Suspect]
     Indication: ABDOMINAL PAIN
     Dosage: 100 MG (100 MG, ONCE), RECTAL
     Route: 054
     Dates: start: 20030528, end: 20030528
  3. MIFEGYNE (MIFEPRISTONE) [Suspect]
     Indication: ABORTION
     Dosage: 600 MG (600 MG, ONCE), ORAL
     Route: 048
     Dates: start: 20030526, end: 20030526

REACTIONS (5)
  - ABORTION INCOMPLETE [None]
  - FATIGUE [None]
  - HYPERSOMNIA [None]
  - NAUSEA [None]
  - VAGINAL HAEMORRHAGE [None]
